FAERS Safety Report 17759785 (Version 1)
Quarter: 2020Q2

REPORT INFORMATION
  Report Type: Spontaneous
  Country: FR (occurrence: FR)
  Receive Date: 20200508
  Receipt Date: 20200508
  Transmission Date: 20200714
  Serious: Yes (Hospitalization, Other)
  Sender: FDA-Public Use
  Company Number: FR-SA-2020SA115438

PATIENT
  Age: 72 Year
  Sex: Female
  Weight: 99 kg

DRUGS (10)
  1. VECTIBIX [Suspect]
     Active Substance: PANITUMUMAB
     Indication: ADENOCARCINOMA OF COLON
     Dosage: 612 MG, QCY
     Route: 041
     Dates: start: 20200129, end: 20200129
  2. OXALIPLATIN. [Suspect]
     Active Substance: OXALIPLATIN
     Dosage: 170 MG, QCY
     Route: 041
     Dates: start: 20200312, end: 20200312
  3. OXALIPLATIN. [Suspect]
     Active Substance: OXALIPLATIN
     Indication: ADENOCARCINOMA OF COLON
     Dosage: 170 MG, QCY
     Route: 041
     Dates: start: 20200129, end: 20200129
  4. VECTIBIX [Suspect]
     Active Substance: PANITUMUMAB
     Dosage: 612 MG, QCY
     Route: 041
     Dates: start: 20200312, end: 20200312
  5. LEVOFOLINATE SODIUM [Suspect]
     Active Substance: LEVOLEUCOVORIN DISODIUM
     Indication: ADENOCARCINOMA OF COLON
     Dosage: 400 MG, QCY
     Route: 041
     Dates: start: 20200129, end: 20200129
  6. FLUOROURACIL. [Suspect]
     Active Substance: FLUOROURACIL
     Indication: ADENOCARCINOMA OF COLON
     Dosage: 4800 MG, QCY
     Route: 041
     Dates: start: 20200129, end: 20200129
  7. LEVOFOLINATE SODIUM [Suspect]
     Active Substance: LEVOLEUCOVORIN DISODIUM
     Dosage: 400 MG, QCY
     Route: 041
     Dates: start: 20200312, end: 20200312
  8. METHYLPREDNISOLONE. [Suspect]
     Active Substance: METHYLPREDNISOLONE
     Indication: CHEMOTHERAPY
     Dosage: 40 MG, 1X
     Route: 041
     Dates: start: 20200312, end: 20200312
  9. FLUOROURACIL. [Suspect]
     Active Substance: FLUOROURACIL
     Dosage: 4800 MG, QCY
     Route: 041
     Dates: start: 20200312, end: 20200312
  10. ONDANSETRON HYDROCHLORIDE. [Suspect]
     Active Substance: ONDANSETRON HYDROCHLORIDE
     Indication: NAUSEA
     Dosage: 8 MG, QD
     Route: 048
     Dates: start: 20200312, end: 20200314

REACTIONS (3)
  - Diarrhoea [Recovered/Resolved]
  - Acute kidney injury [Recovered/Resolved]
  - Dermatitis bullous [Recovering/Resolving]

NARRATIVE: CASE EVENT DATE: 202003
